FAERS Safety Report 12500985 (Version 3)
Quarter: 2016Q3

REPORT INFORMATION
  Report Type: Report from Study
  Country: US (occurrence: US)
  Receive Date: 20160627
  Receipt Date: 20160809
  Transmission Date: 20161109
  Serious: Yes (Hospitalization)
  Sender: FDA-Public Use
  Company Number: US-PFIZER INC-2016310463

PATIENT
  Age: 19 Year
  Sex: Female
  Weight: 78.91 kg

DRUGS (16)
  1. ZOLOFT [Suspect]
     Active Substance: SERTRALINE HYDROCHLORIDE
     Dosage: 150 MG, EVERY MORNING
     Route: 048
     Dates: start: 20160503, end: 20160508
  2. OLANZAPINE. [Suspect]
     Active Substance: OLANZAPINE
     Dosage: 12.5 MG, AT BEDTIME
     Route: 048
     Dates: start: 20160512, end: 20160513
  3. LITHIUM. [Concomitant]
     Active Substance: LITHIUM
     Dosage: 300 MG QHS
     Route: 048
     Dates: start: 20160609
  4. ABILIFY [Concomitant]
     Active Substance: ARIPIPRAZOLE
     Indication: MAJOR DEPRESSION
     Dosage: 10 MG, 1X/DAY (EVERY MORNING)
     Route: 048
     Dates: start: 20160609
  5. CLONAZEPAM. [Concomitant]
     Active Substance: CLONAZEPAM
     Indication: INSOMNIA
     Dosage: 0.5 MG, AT BEDTIME AS NEEDED
     Route: 048
     Dates: start: 20160609
  6. ZOLOFT [Suspect]
     Active Substance: SERTRALINE HYDROCHLORIDE
     Indication: MAJOR DEPRESSION
     Dosage: 50 MG, EVERY MORNING
     Route: 048
     Dates: start: 20160404, end: 20160405
  7. ZOLOFT [Suspect]
     Active Substance: SERTRALINE HYDROCHLORIDE
     Dosage: 125 MG, EVERY MORNING
     Route: 048
     Dates: start: 20160430, end: 20160502
  8. OLANZAPINE. [Suspect]
     Active Substance: OLANZAPINE
     Indication: MAJOR DEPRESSION
     Dosage: 5 MG, 1X/DAY AT BEDTIME
     Route: 048
     Dates: start: 20160404, end: 20160404
  9. LITHIUM. [Concomitant]
     Active Substance: LITHIUM
     Indication: MAJOR DEPRESSION
     Dosage: 150MG QHS
     Route: 048
     Dates: start: 20160608, end: 20160608
  10. ZOLOFT [Suspect]
     Active Substance: SERTRALINE HYDROCHLORIDE
     Dosage: 100 MG, EVERY MORNING
     Route: 048
     Dates: start: 20160422, end: 20160429
  11. ZOLOFT [Suspect]
     Active Substance: SERTRALINE HYDROCHLORIDE
     Dosage: 200 MG, EVERY MORNING
     Route: 048
     Dates: start: 20160509
  12. OLANZAPINE. [Suspect]
     Active Substance: OLANZAPINE
     Indication: PSYCHOTIC DISORDER
     Dosage: 7.5 MG, AT BEDTIME
     Route: 048
     Dates: start: 20160405, end: 20160405
  13. OLANZAPINE. [Suspect]
     Active Substance: OLANZAPINE
     Dosage: 10 MG, AT BEDTIME
     Route: 048
     Dates: start: 20160406, end: 20160511
  14. ZOLOFT [Suspect]
     Active Substance: SERTRALINE HYDROCHLORIDE
     Indication: PSYCHOTIC DISORDER
     Dosage: 100 MG, EVERY MORNING
     Route: 048
     Dates: start: 20160406, end: 20160417
  15. ZOLOFT [Suspect]
     Active Substance: SERTRALINE HYDROCHLORIDE
     Dosage: 150 MG, EVERY MORNING
     Route: 048
     Dates: start: 20160418, end: 20160420
  16. OLANZAPINE. [Suspect]
     Active Substance: OLANZAPINE
     Dosage: 10 MG, AT BEDTIME
     Route: 048
     Dates: start: 20160514, end: 20160608

REACTIONS (2)
  - Suicide attempt [Recovered/Resolved]
  - Overdose [Recovered/Resolved]

NARRATIVE: CASE EVENT DATE: 20160610
